FAERS Safety Report 8364673-3 (Version None)
Quarter: 2012Q2

REPORT INFORMATION
  Report Type: 
  Country: None (occurrence: None)
  Receive Date: 20120516
  Receipt Date: 20120515
  Transmission Date: 20120825
  Serious: Yes (Life-Threatening, Hospitalization)
  Sender: FDA-Public Use
  Company Number: RU-BAYER-2012-047703

PATIENT
  Age: 19 Year
  Sex: Female

DRUGS (4)
  1. ACETAMINOPHEN [Suspect]
     Indication: HEADACHE
  2. ASPIRIN [Suspect]
     Indication: HEADACHE
  3. ACETAMINOPHEN [Suspect]
     Indication: PYREXIA
     Dosage: 500 MG, TID
     Route: 048
     Dates: start: 20120113
  4. ASPIRIN [Suspect]
     Indication: PYREXIA
     Dosage: 500 MG, BID
     Route: 048
     Dates: start: 20120113

REACTIONS (6)
  - TUBULOINTERSTITIAL NEPHRITIS [None]
  - ABDOMINAL PAIN UPPER [None]
  - NAUSEA [None]
  - VOMITING [None]
  - ASTHENIA [None]
  - ENTEROCOLITIS INFECTIOUS [None]
